FAERS Safety Report 9044914 (Version 1)
Quarter: 2013Q1

REPORT INFORMATION
  Report Type: Report from Study
  Country: JP (occurrence: JP)
  Receive Date: 20130130
  Receipt Date: 20130130
  Transmission Date: 20140127
  Serious: Yes (Other)
  Sender: FDA-Public Use
  Company Number: JP-GLAXOSMITHKLINE-B0860683A

PATIENT
  Age: 22 None
  Sex: Male
  Weight: 80 kg

DRUGS (15)
  1. ARRANON [Suspect]
     Indication: T-CELL TYPE ACUTE LEUKAEMIA
     Dosage: 1500MGM2 PER DAY
     Route: 042
     Dates: start: 20110331, end: 20110404
  2. CYTARABINE [Concomitant]
     Indication: NEOPLASM MALIGNANT
     Route: 042
     Dates: start: 20091022, end: 20100614
  3. CYTARABINE [Concomitant]
     Indication: NEOPLASM MALIGNANT
     Route: 042
     Dates: start: 20101220, end: 20101222
  4. CRAVIT [Concomitant]
     Indication: PROPHYLAXIS
     Route: 048
     Dates: start: 20110328, end: 20110502
  5. ITRIZOLE [Concomitant]
     Indication: PROPHYLAXIS
     Route: 048
     Dates: start: 20110328, end: 20110502
  6. ZYLORIC [Concomitant]
     Indication: PROPHYLAXIS
     Route: 048
     Dates: start: 20110328, end: 20110502
  7. METHYCOBAL [Concomitant]
     Route: 048
     Dates: start: 20110328, end: 20110502
  8. POVIDONE IODINE GARGLE [Concomitant]
     Indication: PROPHYLAXIS
     Route: 002
     Dates: start: 20110328, end: 20110502
  9. BARACLUDE [Concomitant]
     Route: 048
     Dates: start: 20110427, end: 20110502
  10. MAGLAX [Concomitant]
     Route: 048
     Dates: start: 20110427, end: 20110502
  11. FUROSEMIDE [Concomitant]
     Indication: OEDEMA
     Route: 042
     Dates: start: 20110331, end: 20110417
  12. MEYLON [Concomitant]
     Route: 042
     Dates: start: 20110403, end: 20110412
  13. HARTMANN^S [Concomitant]
     Indication: TUMOUR LYSIS SYNDROME
     Route: 042
     Dates: start: 20110330, end: 20110413
  14. SODIUM CHLORIDE + GLUCOSE INTRAVENOUS INFUSION [Concomitant]
     Indication: TUMOUR LYSIS SYNDROME
     Route: 042
     Dates: start: 20110330, end: 20110413
  15. NEUTROGIN [Concomitant]
     Dates: start: 20110405, end: 20110421

REACTIONS (2)
  - Pancytopenia [Recovering/Resolving]
  - Vomiting [Recovered/Resolved]
